FAERS Safety Report 6762341-2 (Version None)
Quarter: 2010Q2

REPORT INFORMATION
  Report Type: 
  Country: None (occurrence: None)
  Receive Date: 20100609
  Receipt Date: 20100527
  Transmission Date: 20101027
  Serious: Yes (Hospitalization, Other)
  Sender: FDA-Public Use
  Company Number: PHEH2009US01295

PATIENT
  Sex: Male

DRUGS (42)
  1. ELIDEL [Suspect]
     Indication: ECZEMA
     Dosage: BID
     Route: 061
     Dates: start: 20050317
  2. PROTOPIC [Suspect]
     Indication: ECZEMA
  3. ZYRTEC [Concomitant]
     Dosage: 1 TAB, QD
     Route: 048
  4. AMBIEN [Concomitant]
     Dosage: 2.5 MG, QHS
     Route: 048
  5. SUDAFED 12 HOUR [Concomitant]
     Dosage: UNK
     Route: 048
  6. CHEMOTHERAPEUTICS NOS [Concomitant]
     Dosage: UNK
  7. OXYCODONE [Concomitant]
     Dosage: 10 MG, PRN
     Route: 048
  8. XANAX [Concomitant]
     Dosage: 0.5 MG, BID
     Route: 048
  9. KLONOPIN [Concomitant]
     Dosage: 1 MG, BID
     Route: 048
  10. NEXIUM [Concomitant]
     Dosage: 40 MG, QD
     Route: 048
  11. MOXIFLOXACIN [Concomitant]
     Dosage: 400 MG, QD
     Route: 048
  12. ZOFRAN [Concomitant]
     Dosage: 8 MG, PRN
     Route: 048
  13. VALTREX [Concomitant]
     Dosage: 500 MG, QD
     Route: 048
  14. TYLENOL [Concomitant]
     Dosage: 650 MG, PRN
     Route: 048
  15. ATIVAN [Concomitant]
     Dosage: 1 MG, PRN
     Route: 048
  16. FAMOTIDINE [Concomitant]
     Dosage: 20 MG, BID
     Route: 048
  17. COLACE [Concomitant]
     Dosage: 100 MG, QD
     Route: 048
  18. DOCUSATE [Suspect]
     Dosage: 100 MG, QD
     Route: 048
  19. SENNA [Concomitant]
     Dosage: 1 TAB, BID
     Route: 048
  20. PROAIR (FLUTICASONE PROPIONATE) [Concomitant]
     Dosage: UNK
  21. VICODIN [Concomitant]
     Dosage: UNK
     Route: 048
  22. FLEXERIL [Concomitant]
     Dosage: 10 MG, PRN
     Route: 048
  23. ADVAIR DISKUS 100/50 [Concomitant]
     Dosage: UNK
  24. PROCARBAZINE [Concomitant]
     Dosage: 200 MG, QD
     Route: 048
     Dates: start: 20070116, end: 20070123
  25. KYTRIL [Concomitant]
     Dosage: UNK
     Route: 048
  26. ARANESP [Concomitant]
     Dosage: UNK
  27. CYTOXAN [Concomitant]
     Dosage: 2520 MG, UNK
  28. ADRIAMYCIN PFS [Concomitant]
     Dosage: 75 MG, UNK
  29. PREDNISONE [Concomitant]
     Dosage: 80 MG, UNK
     Route: 048
     Dates: start: 20061128, end: 20061211
  30. ETOPOSIDE [Concomitant]
     Dosage: 420 UNK, UNK
  31. BLEOMYCIN [Concomitant]
     Dosage: 20 UNK, UNK
  32. VINCRISTINE [Concomitant]
     Dosage: 2 UNK, UNK
  33. DECADRON                                /NET/ [Concomitant]
     Dosage: 20 MG, UNK
  34. MESNA [Concomitant]
  35. IFOSFAMIDE + CARBOPLATIN + ETOPOSIDE [Concomitant]
     Dosage: UNK
  36. ASPIRIN [Concomitant]
     Dosage: 81 MG, QD
     Route: 048
  37. PEPCID [Concomitant]
     Dosage: 20 MG, BID
     Route: 048
  38. NEULASTA [Concomitant]
  39. OXYCONTIN [Concomitant]
  40. ZANTAC [Concomitant]
  41. IBUPROFEN [Concomitant]
     Dosage: 600 MG, PRN
  42. ALBUTEROL [Concomitant]

REACTIONS (60)
  - ABDOMINAL SYMPTOM [None]
  - ABNORMAL LOSS OF WEIGHT [None]
  - ACNE [None]
  - ALANINE AMINOTRANSFERASE INCREASED [None]
  - ANAEMIA [None]
  - ANXIETY [None]
  - ASPARTATE AMINOTRANSFERASE INCREASED [None]
  - ASTHMA [None]
  - BONE PAIN [None]
  - BRONCHITIS [None]
  - CATHETER PLACEMENT [None]
  - CATHETER REMOVAL [None]
  - CONSTIPATION [None]
  - COUGH [None]
  - DIARRHOEA [None]
  - DISEASE PROGRESSION [None]
  - DIZZINESS [None]
  - DYSPNOEA [None]
  - ECONOMIC PROBLEM [None]
  - EOSINOPHILIA [None]
  - FALL [None]
  - FATIGUE [None]
  - FEBRILE NEUTROPENIA [None]
  - HEADACHE [None]
  - HEART RATE IRREGULAR [None]
  - HEPATIC LESION [None]
  - HIP SURGERY [None]
  - HODGKIN'S DISEASE [None]
  - HYPERSENSITIVITY [None]
  - INJURY [None]
  - INSOMNIA [None]
  - JAUNDICE [None]
  - LIPOMA [None]
  - LYMPHADENOPATHY [None]
  - METAPLASIA [None]
  - MUCOSAL INFLAMMATION [None]
  - MUSCLE STRAIN [None]
  - NAUSEA [None]
  - NEUTROPHIL COUNT ABNORMAL [None]
  - NIGHT SWEATS [None]
  - ORAL DISORDER [None]
  - ORCHITIS [None]
  - OROPHARYNGEAL PAIN [None]
  - PAIN [None]
  - PAIN IN EXTREMITY [None]
  - PANCREATIC DISORDER [None]
  - PILONIDAL CYST [None]
  - PLATELET COUNT DECREASED [None]
  - PYREXIA [None]
  - ROAD TRAFFIC ACCIDENT [None]
  - SINUSITIS [None]
  - SKIN LACERATION [None]
  - SPLENIC LESION [None]
  - STEM CELL TRANSPLANT [None]
  - SYNCOPE [None]
  - THYROIDITIS [None]
  - UPPER RESPIRATORY TRACT INFECTION [None]
  - VOMITING [None]
  - WEIGHT DECREASED [None]
  - WHITE BLOOD CELL COUNT INCREASED [None]
